FAERS Safety Report 24342141 (Version 1)
Quarter: 2024Q3

REPORT INFORMATION
  Report Type: Spontaneous
  Country: ES (occurrence: ES)
  Receive Date: 20240920
  Receipt Date: 20240920
  Transmission Date: 20241016
  Serious: Yes (Hospitalization)
  Sender: INDOCO
  Company Number: ES-INDOCO-IND-2024-ES-LIT-00113

PATIENT

DRUGS (1)
  1. ALLOPURINOL [Suspect]
     Active Substance: ALLOPURINOL
     Indication: Blood uric acid increased
     Route: 065

REACTIONS (1)
  - Drug-induced liver injury [Recovering/Resolving]
